FAERS Safety Report 4314135-5 (Version None)
Quarter: 2004Q1

REPORT INFORMATION
  Report Type: 
  Country: None (occurrence: None)
  Receive Date: 20040308
  Receipt Date: 20040308
  Transmission Date: 20041129
  Serious: Yes (Other)
  Sender: FDA-Public Use
  Company Number: None

PATIENT
  Sex: Male
  Weight: 78.4723 kg

DRUGS (2)
  1. ACCUTANE [Suspect]
     Indication: ACNE
     Dosage: 40 MG X2 DAY ORAL
     Route: 048
     Dates: start: 20010101, end: 20031231
  2. CLARAVIS [Suspect]
     Indication: ACNE
     Dosage: 40MG 2X DAY ORAL
     Route: 048
     Dates: start: 20040211, end: 20040306

REACTIONS (8)
  - ABNORMAL BEHAVIOUR [None]
  - BLOOD TRIGLYCERIDES INCREASED [None]
  - EDUCATIONAL PROBLEM [None]
  - FEELING ABNORMAL [None]
  - HIGH DENSITY LIPOPROTEIN DECREASED [None]
  - MENTAL DISORDER [None]
  - MOOD SWINGS [None]
  - THINKING ABNORMAL [None]
